FAERS Safety Report 18742217 (Version 2)
Quarter: 2021Q1

REPORT INFORMATION
  Report Type: Spontaneous
  Country: AU (occurrence: AU)
  Receive Date: 20210114
  Receipt Date: 20210223
  Transmission Date: 20210419
  Serious: Yes (Death, Life-Threatening, Other)
  Sender: FDA-Public Use
  Company Number: AU-BAUSCH-BL-2021-000189

PATIENT
  Age: 35 Year
  Sex: Male

DRUGS (13)
  1. ATROPINE. [Suspect]
     Active Substance: ATROPINE
     Indication: MENTAL DISORDER
     Route: 065
  2. HYOSCINE BUTYLBROMIDE [Suspect]
     Active Substance: BUTYLSCOPOLAMINE BROMIDE
     Indication: MENTAL DISORDER
     Route: 065
  3. CLOPINE [Suspect]
     Active Substance: CLOZAPINE
     Route: 065
     Dates: start: 200408
  4. CLOPINE [Suspect]
     Active Substance: CLOZAPINE
     Route: 065
     Dates: start: 2007
  5. CLOPINE [Suspect]
     Active Substance: CLOZAPINE
     Route: 065
     Dates: start: 201103, end: 201110
  6. CLOPINE [Suspect]
     Active Substance: CLOZAPINE
     Route: 065
     Dates: start: 20130527, end: 20140427
  7. LITHIUM CARBONATE. [Suspect]
     Active Substance: LITHIUM CARBONATE
     Indication: MENTAL DISORDER
     Route: 065
  8. CLOPINE [Suspect]
     Active Substance: CLOZAPINE
     Indication: MENTAL DISORDER
     Route: 065
     Dates: start: 2002
  9. CLONAZEPAM. [Suspect]
     Active Substance: CLONAZEPAM
     Indication: MENTAL DISORDER
     Route: 065
  10. PERINDOPRIL [Suspect]
     Active Substance: PERINDOPRIL
     Indication: MENTAL DISORDER
     Route: 065
  11. LEVETIRACETAM. [Suspect]
     Active Substance: LEVETIRACETAM
     Indication: MENTAL DISORDER
     Route: 065
  12. CLOPINE [Suspect]
     Active Substance: CLOZAPINE
     Route: 065
     Dates: start: 2010
  13. THYROXINE [Suspect]
     Active Substance: LEVOTHYROXINE
     Indication: MENTAL DISORDER
     Route: 065

REACTIONS (3)
  - Gastrointestinal hypomotility [Fatal]
  - Agranulocytosis [Unknown]
  - Myocarditis [Unknown]

NARRATIVE: CASE EVENT DATE: 201110
